FAERS Safety Report 8273535-1 (Version None)
Quarter: 2012Q2

REPORT INFORMATION
  Report Type: 
  Country: None (occurrence: None)
  Receive Date: 20120409
  Receipt Date: 20120409
  Transmission Date: 20120825
  Serious: Yes (Life-Threatening, Hospitalization)
  Sender: FDA-Public Use
  Company Number: None

PATIENT
  Age: 83 Year
  Sex: Male
  Weight: 90.9 kg

DRUGS (2)
  1. INSULIN [Suspect]
     Indication: DIABETES MELLITUS
     Dosage: 33 UNITS AM SQ
     Route: 058
     Dates: start: 20100208
  2. GLIPIZIDE [Suspect]
     Indication: DIABETES MELLITUS
     Dates: start: 20090414, end: 20110720

REACTIONS (5)
  - SYNCOPE [None]
  - TACHYCARDIA [None]
  - FALL [None]
  - CONFUSIONAL STATE [None]
  - HYPOGLYCAEMIA [None]
